FAERS Safety Report 7582250-9 (Version None)
Quarter: 2011Q2

REPORT INFORMATION
  Report Type: 
  Country: None (occurrence: None)
  Receive Date: 20110527
  Receipt Date: 20101025
  Transmission Date: 20111010
  Serious: Yes (Hospitalization)
  Sender: FDA-Public Use
  Company Number: US200912001830

PATIENT
  Sex: Female
  Weight: 89.3 kg

DRUGS (4)
  1. BYETTA [Suspect]
     Dates: start: 20070801, end: 20090401
  2. EXENATIDE PEN, DISPOSABLE DEVICE (EXENATIDE PEN, DISPOSABLE) [Concomitant]
  3. ORAL BLOOD GLUCOSE LOWERING DRUGS [Concomitant]
  4. ANTIDEPRESSANTS [Concomitant]

REACTIONS (2)
  - PANCREATITIS [None]
  - DIABETES MELLITUS [None]
